FAERS Safety Report 24669818 (Version 1)
Quarter: 2024Q4

REPORT INFORMATION
  Report Type: Report from Study
  Country: US (occurrence: US)
  Receive Date: 20241127
  Receipt Date: 20241127
  Transmission Date: 20250115
  Serious: Yes (Hospitalization)
  Sender: VERTEX
  Company Number: US-VERTEX PHARMACEUTICALS-2024-018302

PATIENT
  Age: 39 Year
  Sex: Female

DRUGS (19)
  1. TRIKAFTA [Suspect]
     Active Substance: ELEXACAFTOR\IVACAFTOR\TEZACAFTOR
     Indication: Cystic fibrosis
     Dosage: 2 TABS AM, 1 TAB PM
     Route: 048
     Dates: start: 20200116
  2. AZELASTINE [Concomitant]
     Active Substance: AZELASTINE
     Route: 045
  3. VITAMIN B12 [Concomitant]
     Active Substance: CYANOCOBALAMIN
  4. SODIUM CHLORIDE [Concomitant]
     Active Substance: SODIUM CHLORIDE
     Dosage: 126 ML
  5. ALLEGRA ALLERGY [Concomitant]
     Active Substance: FEXOFENADINE HYDROCHLORIDE
  6. TYLENOL [Concomitant]
     Active Substance: ACETAMINOPHEN
  7. METOPROLOL [Concomitant]
     Active Substance: METOPROLOL
  8. ELIQUIS [Concomitant]
     Active Substance: APIXABAN
  9. INSULIN ASPART [Concomitant]
     Active Substance: INSULIN ASPART
  10. PREDNISONE [Concomitant]
     Active Substance: PREDNISONE
  11. MIDODRINE [Concomitant]
     Active Substance: MIDODRINE
  12. GABAPENTIN [Concomitant]
     Active Substance: GABAPENTIN
  13. BUSPIRONE [Concomitant]
     Active Substance: BUSPIRONE HYDROCHLORIDE
     Dosage: 7.5
  14. ONDANSETRON [Concomitant]
     Active Substance: ONDANSETRON
  15. FOLIC ACID [Concomitant]
     Active Substance: FOLIC ACID
  16. TACROLIMUS [Concomitant]
     Active Substance: TACROLIMUS
  17. MYFORTIC [Concomitant]
     Active Substance: MYCOPHENOLATE SODIUM
  18. CREON [Concomitant]
     Active Substance: PANCRELIPASE AMYLASE\PANCRELIPASE LIPASE\PANCRELIPASE PROTEASE
     Dosage: 36000 UT
  19. CALCIUM\VITAMIN D [Concomitant]
     Active Substance: CALCIUM\VITAMIN D

REACTIONS (2)
  - Asthenia [Recovered/Resolved]
  - Gait disturbance [Recovered/Resolved]

NARRATIVE: CASE EVENT DATE: 20241116
